FAERS Safety Report 24236974 (Version 4)
Quarter: 2024Q4

REPORT INFORMATION
  Report Type: Spontaneous
  Country: CA (occurrence: CA)
  Receive Date: 20240822
  Receipt Date: 20241212
  Transmission Date: 20250115
  Serious: Yes (Other)
  Sender: CELLTRION
  Company Number: CA-PFIZER INC-202201179799

PATIENT

DRUGS (15)
  1. INFLECTRA [Suspect]
     Active Substance: INFLIXIMAB-DYYB
     Indication: Crohn^s disease
     Dosage: 5 MG/KG, WEEK 0, 2, 6 AND THEN EVERY 8 WEEKS
     Route: 042
     Dates: start: 20220830
  2. INFLECTRA [Suspect]
     Active Substance: INFLIXIMAB-DYYB
     Dosage: 5 MG/KG, WEEK 0, 2, 6 AND THEN EVERY 8 WEEKS
     Route: 042
     Dates: start: 20220913
  3. INFLECTRA [Suspect]
     Active Substance: INFLIXIMAB-DYYB
     Dosage: 5 MG/KG, WEEK 0, 2, 6 AND THEN EVERY 8 WEEKS
     Route: 042
     Dates: start: 20221013
  4. INFLECTRA [Suspect]
     Active Substance: INFLIXIMAB-DYYB
     Dosage: 5 MG/KG, WEEK 0, 2, 6 AND THEN EVERY 8 WEEKS
     Route: 042
     Dates: start: 20221207
  5. INFLECTRA [Suspect]
     Active Substance: INFLIXIMAB-DYYB
     Dosage: 5 MG/KG, WEEK 0, 2, 6 AND THEN EVERY 8 WEEKS
     Route: 042
     Dates: start: 20230131
  6. INFLECTRA [Suspect]
     Active Substance: INFLIXIMAB-DYYB
     Dosage: 5 MG/KG, WEEK 0, 2, 6 AND THEN EVERY 8 WEEKS
     Route: 042
     Dates: start: 20230524
  7. INFLECTRA [Suspect]
     Active Substance: INFLIXIMAB-DYYB
     Dosage: 1400 MG, AFTER 11 WEEKS (PRESCRIBED EVERY 8 WEEKS)
     Route: 042
     Dates: start: 20230809
  8. INFLECTRA [Suspect]
     Active Substance: INFLIXIMAB-DYYB
     Dosage: 475 MG, AFTER 9 WEEKS AND 6 DAYS (PRESCRIBED EVERY 8 WEEKS)
     Route: 042
     Dates: start: 20231017
  9. INFLECTRA [Suspect]
     Active Substance: INFLIXIMAB-DYYB
     Dosage: 5 MG/KG (500 MG), AFTER 10 WEEKS AND 1 DAY (PRESCRIBED EVERY 8 WEEKS)
     Route: 042
     Dates: start: 20231227
  10. INFLECTRA [Suspect]
     Active Substance: INFLIXIMAB-DYYB
     Dosage: 5 MG/KG, AFTER 8 WEEKS AND 5 DAYS (WEEK 0, 2, 6 AND THEN EVERY 8 WEEKS)
     Route: 042
     Dates: start: 20240226
  11. INFLECTRA [Suspect]
     Active Substance: INFLIXIMAB-DYYB
     Dosage: 5 MG/KG (510 MG), AFTER 8 WEEKS
     Route: 042
     Dates: start: 20240426
  12. INFLECTRA [Suspect]
     Active Substance: INFLIXIMAB-DYYB
     Dosage: 5 MG/KG, Q 0, 2, 6 WEEKS THEN EVERY 8 WEEKS
     Route: 042
     Dates: start: 20240618
  13. INFLECTRA [Suspect]
     Active Substance: INFLIXIMAB-DYYB
     Dosage: 515 MG (5 MG/KG), AFTER 8 WEEKS (Q 0, 2, 6 WEEKS THEN EVERY 8 WEEKS)
     Route: 042
     Dates: start: 20240813
  14. INFLECTRA [Suspect]
     Active Substance: INFLIXIMAB-DYYB
     Dosage: 530 MG AFTER 8 WEEKS ( 5 MG/KG, Q 0, 2, 6 WEEKS THEN EVERY 8 WEEKS)
     Route: 042
     Dates: start: 20241008
  15. INFLECTRA [Suspect]
     Active Substance: INFLIXIMAB-DYYB
     Dosage: 540 MG, 8 WEEKS 2 DAYS ( 5 MG/KG, Q 0, 2, 6 WEEKS THEN EVERY 8 WEEKS)
     Route: 042
     Dates: start: 20241205

REACTIONS (13)
  - Uveitis [Recovered/Resolved]
  - Condition aggravated [Not Recovered/Not Resolved]
  - Eyelid irritation [Unknown]
  - Dry eye [Unknown]
  - Illness [Recovering/Resolving]
  - Anal fissure [Not Recovered/Not Resolved]
  - COVID-19 [Not Recovered/Not Resolved]
  - Arthralgia [Recovered/Resolved]
  - Nasopharyngitis [Not Recovered/Not Resolved]
  - Oropharyngeal pain [Not Recovered/Not Resolved]
  - Off label use [Unknown]
  - Off label use [Unknown]
  - Inappropriate schedule of product administration [Unknown]

NARRATIVE: CASE EVENT DATE: 20220101
